FAERS Safety Report 11313352 (Version 2)
Quarter: 2015Q4

REPORT INFORMATION
  Report Type: Report from Study
  Country: BR (occurrence: BR)
  Receive Date: 20150727
  Receipt Date: 20151112
  Transmission Date: 20160304
  Serious: Yes (Hospitalization, Other)
  Sender: FDA-Public Use
  Company Number: BR-ABBVIE-15K-020-1430456-00

PATIENT
  Age: 26 Year
  Sex: Female
  Weight: 49 kg

DRUGS (2)
  1. HUMIRA [Suspect]
     Active Substance: ADALIMUMAB
     Indication: RHEUMATOID ARTHRITIS
     Route: 058
     Dates: start: 20150206
  2. PREDNISONE. [Concomitant]
     Active Substance: PREDNISONE
     Indication: PAIN
     Route: 048

REACTIONS (8)
  - Temperature intolerance [Not Recovered/Not Resolved]
  - Drug ineffective [Unknown]
  - Skin discolouration [Not Recovered/Not Resolved]
  - Blood glucose decreased [Recovered/Resolved]
  - Feeling abnormal [Recovered/Resolved]
  - Anaemia [Not Recovered/Not Resolved]
  - Heart rate increased [Recovered/Resolved]
  - Heart rate increased [Unknown]

NARRATIVE: CASE EVENT DATE: 2015
